FAERS Safety Report 8552028-8 (Version None)
Quarter: 2012Q3

REPORT INFORMATION
  Report Type: 
  Country: None (occurrence: None)
  Receive Date: 20120730
  Receipt Date: 20120725
  Transmission Date: 20120928
  Serious: Yes (Death, Other)
  Sender: FDA-Public Use
  Company Number: JP-GENZYME-THYM-1003096

PATIENT
  Sex: Male
  Weight: 58 kg

DRUGS (1)
  1. THYMOGLOBULIN [Suspect]
     Indication: BONE MARROW CONDITIONING REGIMEN
     Dosage: 155 MG, QD
     Route: 042
     Dates: start: 20110807, end: 20110808

REACTIONS (2)
  - CIRCULATORY COLLAPSE [None]
  - ESCHERICHIA SEPSIS [None]
